FAERS Safety Report 23349420 (Version 3)
Quarter: 2024Q1

REPORT INFORMATION
  Report Type: Other
  Country: IN (occurrence: None)
  Receive Date: 20231229
  Receipt Date: 20240108
  Transmission Date: 20240409
  Serious: Yes (Other)
  Sender: FDA-Public Use
  Company Number: IN-ROCHE-3482273

PATIENT
  Age: 22 Year
  Sex: Male

DRUGS (1)
  1. ACTEMRA [Suspect]
     Active Substance: TOCILIZUMAB
     Indication: Rheumatoid arthritis
     Route: 058
     Dates: start: 20220816

REACTIONS (1)
  - Bentall procedure [Recovered/Resolved with Sequelae]

NARRATIVE: CASE EVENT DATE: 20230602
